APPROVED DRUG PRODUCT: POTASSIUM CHLORIDE
Active Ingredient: POTASSIUM CHLORIDE
Strength: 40MEQ/15ML
Dosage Form/Route: SOLUTION;ORAL
Application: A211648 | Product #002 | TE Code: AA
Applicant: SCIEGEN PHARMACEUTICALS INC
Approved: May 21, 2021 | RLD: No | RS: No | Type: RX